FAERS Safety Report 14343298 (Version 2)
Quarter: 2020Q3

REPORT INFORMATION
  Report Type: Spontaneous
  Country: HU (occurrence: HU)
  Receive Date: 20180102
  Receipt Date: 20180109
  Transmission Date: 20201104
  Serious: Yes (Other)
  Sender: FDA-Public Use
  Company Number: HU-TERSERA THERAPEUTICS, LLC-2038173

PATIENT
  Sex: Female

DRUGS (11)
  1. ZOLEDRONIC ACID [Suspect]
     Active Substance: ZOLEDRONIC ACID
  2. EXEMESTANE. [Suspect]
     Active Substance: EXEMESTANE
  3. XGEVA [Suspect]
     Active Substance: DENOSUMAB
  4. DOCETAXEL. [Suspect]
     Active Substance: DOCETAXEL
  5. PALBOCICLIB [Suspect]
     Active Substance: PALBOCICLIB
  6. ZOLADEX [Suspect]
     Active Substance: GOSERELIN ACETATE
     Indication: PRODUCT USED FOR UNKNOWN INDICATION
     Route: 058
  7. FULVESTRANT. [Suspect]
     Active Substance: FULVESTRANT
     Route: 030
  8. IBANDRONIC ACID. [Suspect]
     Active Substance: IBANDRONIC ACID
  9. CAPECITABINE. [Suspect]
     Active Substance: CAPECITABINE
  10. AFINITOR [Suspect]
     Active Substance: EVEROLIMUS
  11. LETROZOLE. [Suspect]
     Active Substance: LETROZOLE

REACTIONS (8)
  - Metastases to pleura [Unknown]
  - Metastases to spine [Unknown]
  - Metastases to adrenals [Unknown]
  - Metastases to skin [Unknown]
  - Invasive ductal breast carcinoma [Unknown]
  - Breast cancer [Unknown]
  - Metastases to bone [Unknown]
  - Dermatitis [Unknown]

NARRATIVE: CASE EVENT DATE: 201411
